FAERS Safety Report 13793390 (Version 1)
Quarter: 2017Q3

REPORT INFORMATION
  Report Type: Spontaneous
  Country: DK (occurrence: DK)
  Receive Date: 20170726
  Receipt Date: 20170726
  Transmission Date: 20171127
  Serious: Yes (Life-Threatening, Hospitalization)
  Sender: FDA-Public Use
  Company Number: DK-TEVA-788349ACC

PATIENT
  Age: 52 Year
  Sex: Male
  Weight: 70 kg

DRUGS (3)
  1. ATORVATATIN ACTAVIS [Suspect]
     Active Substance: ATORVASTATIN
     Indication: HYPERCHOLESTEROLAEMIA
     Dosage: 40 MILLIGRAM DAILY; STRENGTH: 40 MG
     Route: 048
     Dates: start: 20151005, end: 20170615
  2. HYDROCHLOROTHIAZIDE W/LOSARTAN [Suspect]
     Active Substance: HYDROCHLOROTHIAZIDE\LOSARTAN
     Indication: HYPERTENSION
     Dosage: 1 DOSAGE FORMS DAILY; STRENGTH: 100+25 MG
     Route: 048
     Dates: start: 20120419, end: 20170518
  3. AMLODIPIN ^SANDOZ^ [Concomitant]
     Indication: HYPERTENSION
     Route: 048
     Dates: start: 20131107

REACTIONS (1)
  - Hypokalaemia [Recovered/Resolved]

NARRATIVE: CASE EVENT DATE: 20160312
